FAERS Safety Report 4960235-6 (Version None)
Quarter: 2006Q1

REPORT INFORMATION
  Report Type: 
  Country: None (occurrence: None)
  Receive Date: 20060328
  Receipt Date: 20060315
  Transmission Date: 20060701
  Serious: Yes (Hospitalization)
  Sender: FDA-Public Use
  Company Number: 2006037297

PATIENT
  Age: 74 Year
  Sex: Female
  Weight: 75.7507 kg

DRUGS (8)
  1. DETROL LA [Suspect]
     Indication: POLLAKIURIA
     Dosage: 4 MG (4 MG, 1 IN 1 D), ORAL
     Route: 048
     Dates: start: 20060101
  2. VICODIN [Suspect]
     Indication: PAIN
     Dates: start: 20060201
  3. PREDNISONE TAB [Concomitant]
  4. ARAVA [Concomitant]
  5. CLARITIN [Concomitant]
  6. PRAVACHOL [Concomitant]
  7. VITAMINS (VITAMINS) [Concomitant]
  8. PREVACID [Concomitant]

REACTIONS (3)
  - DRY MOUTH [None]
  - HIP ARTHROPLASTY [None]
  - NOCTURIA [None]
